FAERS Safety Report 12469450 (Version 7)
Quarter: 2016Q3

REPORT INFORMATION
  Report Type: Spontaneous
  Country: US (occurrence: US)
  Receive Date: 20160615
  Receipt Date: 20160824
  Transmission Date: 20161109
  Serious: Yes (Other)
  Sender: FDA-Public Use
  Company Number: US-ACTELION-A-US2016-137410

PATIENT
  Age: 53 Year
  Sex: Male

DRUGS (18)
  1. UPTRAVI [Suspect]
     Active Substance: SELEXIPAG
     Indication: PULMONARY HYPERTENSION
     Dosage: 1000 MCG, BID
     Route: 048
     Dates: start: 20160520
  2. AMBRISENTAN [Suspect]
     Active Substance: AMBRISENTAN
     Indication: PULMONARY HYPERTENSION
     Dosage: 10 MG, QD
     Route: 065
     Dates: start: 20150324
  3. CIALIS [Concomitant]
     Active Substance: TADALAFIL
  4. CLONAZEPAM. [Concomitant]
     Active Substance: CLONAZEPAM
  5. BENAZEPRIL [Concomitant]
     Active Substance: BENAZEPRIL HYDROCHLORIDE
  6. PRAMIPEXOL [Concomitant]
     Active Substance: PRAMIPEXOLE
  7. UPTRAVI [Suspect]
     Active Substance: SELEXIPAG
     Dosage: 1400 MCG, BID
     Route: 048
     Dates: start: 20160520
  8. UPTRAVI [Suspect]
     Active Substance: SELEXIPAG
     Dosage: 1600 MCG, BID
     Route: 048
  9. TRAMADOL. [Concomitant]
     Active Substance: TRAMADOL
  10. ALBUTEROL. [Concomitant]
     Active Substance: ALBUTEROL
  11. MIRAPEX [Concomitant]
     Active Substance: PRAMIPEXOLE DIHYDROCHLORIDE
  12. UPTRAVI [Suspect]
     Active Substance: SELEXIPAG
     Dosage: 1200 MCG, BID
     Route: 048
  13. AMBRISENTAN [Suspect]
     Active Substance: AMBRISENTAN
     Indication: HIV INFECTION
  14. SUDAFED [Concomitant]
     Active Substance: PSEUDOEPHEDRINE HYDROCHLORIDE
  15. RIOCIGUAT [Concomitant]
     Active Substance: RIOCIGUAT
  16. LIPITOR [Concomitant]
     Active Substance: ATORVASTATIN CALCIUM
  17. TRAZODONE [Concomitant]
     Active Substance: TRAZODONE HYDROCHLORIDE
  18. IBUPROFEN. [Concomitant]
     Active Substance: IBUPROFEN

REACTIONS (19)
  - Accidental overdose [Recovered/Resolved]
  - Dysgeusia [Unknown]
  - Weight decreased [Unknown]
  - Arthralgia [Unknown]
  - Malaise [Unknown]
  - Insomnia [Unknown]
  - Nasopharyngitis [Not Recovered/Not Resolved]
  - Dizziness [Unknown]
  - Myalgia [Recovering/Resolving]
  - Headache [Unknown]
  - Muscle fatigue [Unknown]
  - Hypotension [Recovering/Resolving]
  - Feeling cold [Unknown]
  - Pain [Unknown]
  - Musculoskeletal pain [Unknown]
  - Pain in extremity [Unknown]
  - Dyspnoea [Unknown]
  - Decreased appetite [Recovering/Resolving]
  - Restless legs syndrome [Unknown]
